FAERS Safety Report 8260638-0 (Version None)
Quarter: 2012Q2

REPORT INFORMATION
  Report Type: 
  Country: None (occurrence: None)
  Receive Date: 20120405
  Receipt Date: 20120329
  Transmission Date: 20120825
  Serious: Yes (Death, Hospitalization)
  Sender: FDA-Public Use
  Company Number: ES-AMGEN-ESPSP2012006962

PATIENT
  Age: 81 Year
  Sex: Male

DRUGS (5)
  1. NEULASTA [Suspect]
     Indication: CHEMOTHERAPY
     Dosage: UNK
  2. PREDNISONE TAB [Concomitant]
     Indication: NON-HODGKIN'S LYMPHOMA
  3. RITUXIMAB [Concomitant]
     Indication: NON-HODGKIN'S LYMPHOMA
  4. VINCRISTINE [Concomitant]
     Indication: NON-HODGKIN'S LYMPHOMA
  5. CYCLOPHOSPHAMIDE [Concomitant]
     Indication: NON-HODGKIN'S LYMPHOMA

REACTIONS (7)
  - NEUTROPENIA [None]
  - DISEASE PROGRESSION [None]
  - BONE MARROW NECROSIS [None]
  - GENERAL PHYSICAL HEALTH DETERIORATION [None]
  - BLOOD LACTATE DEHYDROGENASE INCREASED [None]
  - BLOOD ALKALINE PHOSPHATASE INCREASED [None]
  - BACK PAIN [None]
